FAERS Safety Report 4766520-5 (Version None)
Quarter: 2005Q3

REPORT INFORMATION
  Report Type: 
  Country: None (occurrence: None)
  Receive Date: 20050909
  Receipt Date: 20050830
  Transmission Date: 20060218
  Serious: Yes (Life-Threatening)
  Sender: FDA-Public Use
  Company Number: 2005121307

PATIENT
  Age: 58 Year
  Sex: Male
  Weight: 57 kg

DRUGS (1)
  1. NICORETTE [Suspect]
     Indication: NICOTINE DEPENDENCE
     Dosage: 15 MG/16 HR, TRANSDERMAL
     Route: 062
     Dates: start: 20050730, end: 20050801

REACTIONS (2)
  - NIGHTMARE [None]
  - PARANOIA [None]
